FAERS Safety Report 4621207-4 (Version None)
Quarter: 2005Q1

REPORT INFORMATION
  Report Type: 
  Country: None (occurrence: None)
  Receive Date: 20050328
  Receipt Date: 20041124
  Transmission Date: 20050727
  Serious: Yes (Life-Threatening, Hospitalization)
  Sender: FDA-Public Use
  Company Number: 05GER0087

PATIENT
  Age: 63 Year
  Sex: Male

DRUGS (3)
  1. AGGRASTAT                  (TIROFIBAN HYDROCHLORIDE) [Suspect]
     Indication: CEREBRAL ARTERY OCCLUSION
     Dosage: 3.2 ML FOLLOWED FOR 2.5 ML/H
     Dates: start: 20030902, end: 20030902
  2. ALTEPLASE [Suspect]
     Indication: CEREBRAL ARTERY OCCLUSION
     Dosage: 70 MG QD
     Dates: start: 20030902, end: 20030902
  3. HEPARIN [Suspect]
     Indication: CEREBRAL ARTERY OCCLUSION
     Dosage: 25,000 IU 250 IU/H
     Dates: start: 20030902, end: 20030902

REACTIONS (4)
  - ASPIRATION [None]
  - HAEMORRHAGE [None]
  - NASOPHARYNGEAL DISORDER [None]
  - TRACHEAL OBSTRUCTION [None]
